FAERS Safety Report 17729719 (Version 3)
Quarter: 2023Q4

REPORT INFORMATION
  Report Type: Report from Study
  Country: MX (occurrence: MX)
  Receive Date: 20200430
  Receipt Date: 20231004
  Transmission Date: 20240110
  Serious: Yes (Other)
  Sender: FDA-Public Use
  Company Number: MX-NOVARTISPH-NVSC2020MX102354

PATIENT
  Age: 70 Year
  Sex: Female
  Weight: 72 kg

DRUGS (15)
  1. ENTRESTO [Suspect]
     Active Substance: SACUBITRIL\VALSARTAN
     Indication: Hypertension
     Dosage: 50 MG, BID (50 MG)
     Route: 048
     Dates: start: 201906
  2. ENTRESTO [Suspect]
     Active Substance: SACUBITRIL\VALSARTAN
     Indication: Cardiac failure
     Dosage: UNK(IN THE MORNING AND AT NIGHT)
     Route: 048
     Dates: start: 201907
  3. ENTRESTO [Suspect]
     Active Substance: SACUBITRIL\VALSARTAN
     Dosage: 1.5 DOSAGE FORM (1 TABLET OF 100 MG IN THE MORNING AND 1 OF 50 MG AT NIGHT)
     Route: 048
     Dates: start: 201908
  4. ENTRESTO [Suspect]
     Active Substance: SACUBITRIL\VALSARTAN
     Dosage: 1 DOSAGE FORM, BID (50 MG) (1 TABLET DURING MORNING AND 1 TABLET DURING NIGHT)
     Route: 048
     Dates: start: 20190810
  5. ENTRESTO [Suspect]
     Active Substance: SACUBITRIL\VALSARTAN
     Dosage: 0.5 DOSAGE FORM, BID (100 MG) (1/2 TABLET DURING MORNING AND 1/2 TABLET DURING NIGHT)
     Route: 048
  6. CARVEDILOL [Concomitant]
     Active Substance: CARVEDILOL
     Indication: Cardiac failure
     Dosage: 0.5 MG(6.25 MG,IN THE MORNING AND AT NIGHT)
     Route: 048
     Dates: start: 201906
  7. CARVEDILOL [Concomitant]
     Active Substance: CARVEDILOL
     Indication: Hypertension
  8. XARELTO [Concomitant]
     Active Substance: RIVAROXABAN
     Indication: Thrombosis
     Dosage: 0.5 DF(2.5 MG,IN THE MORNING)
     Route: 048
     Dates: start: 201906
  9. LANOXIN [Concomitant]
     Active Substance: DIGOXIN
     Indication: Thrombosis
     Dosage: 0.5 DF(AT MIDDAY)
     Route: 048
     Dates: start: 201906
  10. AMIODARONE HYDROCHLORIDE [Concomitant]
     Active Substance: AMIODARONE HYDROCHLORIDE
     Indication: Atrial fibrillation
     Dosage: 1 DF, QD(IN THE MORNING) (STARTED 18 YEARS AGO)
     Route: 048
  11. SPIRONOLACTONE [Concomitant]
     Active Substance: SPIRONOLACTONE
     Indication: Diuretic therapy
     Dosage: 1 DF, QD(25 MG) (STARTED 4 YEARS AGO)
     Route: 048
  12. FUROSEMIDE [Concomitant]
     Active Substance: FUROSEMIDE
     Indication: Diuretic therapy
     Dosage: 2 DF, QD(40 MG) (STARTED 6 YEARS AGO))
     Route: 048
  13. FUROSEMIDE [Concomitant]
     Active Substance: FUROSEMIDE
     Dosage: 1 DOSAGE FORM (40 MG DAILY)
     Route: 048
     Dates: start: 2000
  14. METOPROLOL [Concomitant]
     Active Substance: METOPROLOL
     Indication: Cardiac disorder
     Dosage: 2 DOSAGE FORM (100 MG DAILY)
     Route: 048
     Dates: start: 2000
  15. METOPROLOL [Concomitant]
     Active Substance: METOPROLOL
     Indication: Blood pressure abnormal

REACTIONS (10)
  - Cerebrovascular disorder [Recovered/Resolved]
  - Ejection fraction decreased [Unknown]
  - Blood pressure increased [Not Recovered/Not Resolved]
  - Disorientation [Recovered/Resolved]
  - Vision blurred [Recovered/Resolved]
  - Nausea [Not Recovered/Not Resolved]
  - Stomatitis [Not Recovered/Not Resolved]
  - Wrong technique in product usage process [Unknown]
  - Product administration error [Unknown]
  - Product use in unapproved indication [Not Recovered/Not Resolved]

NARRATIVE: CASE EVENT DATE: 20190701
